FAERS Safety Report 5317441-0 (Version None)
Quarter: 2007Q2

REPORT INFORMATION
  Report Type: 
  Country: None (occurrence: None)
  Receive Date: 20070507
  Receipt Date: 20070502
  Transmission Date: 20071010
  Serious: Yes (Hospitalization)
  Sender: FDA-Public Use
  Company Number: FR-BRISTOL-MYERS SQUIBB COMPANY-13768627

PATIENT
  Age: 74 Year
  Sex: Female

DRUGS (13)
  1. AVAPRO [Suspect]
     Indication: HYPERTENSION
     Route: 048
     Dates: start: 20061101, end: 20061116
  2. ALDACTAZINE [Suspect]
     Dates: end: 20061116
  3. DIAMICRON [Suspect]
     Dates: start: 20061111, end: 20061113
  4. SIMVASTATIN [Suspect]
     Dates: end: 20061116
  5. LEXOMIL [Concomitant]
     Dates: start: 20050101, end: 20061120
  6. TRIVASTAL [Concomitant]
     Dates: start: 20040701
  7. MODOPAR [Concomitant]
     Dates: start: 20041201
  8. ARTANE [Concomitant]
     Dates: start: 20050201
  9. DIFFU-K [Concomitant]
  10. TANAKAN [Concomitant]
  11. MIOREL [Concomitant]
  12. DEROXAT [Concomitant]
     Dates: start: 20061108, end: 20061110
  13. STABLON [Concomitant]
     Dates: start: 20061111, end: 20061113

REACTIONS (3)
  - DIARRHOEA [None]
  - HYPONATRAEMIA [None]
  - VOMITING [None]
